FAERS Safety Report 6332806-6 (Version None)
Quarter: 2009Q3

REPORT INFORMATION
  Report Type: 
  Country: None (occurrence: None)
  Receive Date: 20090828
  Receipt Date: 20090825
  Transmission Date: 20100115
  Serious: Yes (Other)
  Sender: FDA-Public Use
  Company Number: D0062729A

PATIENT
  Age: 45 Year
  Sex: Female

DRUGS (2)
  1. NARAMIG [Suspect]
     Route: 048
  2. IBUPROFEN [Concomitant]
     Route: 065

REACTIONS (1)
  - THROMBOCYTOPENIA [None]
